FAERS Safety Report 19887528 (Version 1)
Quarter: 2021Q3

REPORT INFORMATION
  Report Type: Report from Study
  Country: US (occurrence: US)
  Receive Date: 20210928
  Receipt Date: 20210928
  Transmission Date: 20211014
  Serious: Yes (Hospitalization)
  Sender: FDA-Public Use
  Company Number: US-SA-2021SA254062

PATIENT
  Age: 18 Year
  Sex: Female

DRUGS (5)
  1. ALGLUCOSIDASE ALFA [Suspect]
     Active Substance: ALGLUCOSIDASE ALFA
     Dosage: 1250 MG, QOW
     Route: 041
     Dates: start: 20210920
  2. ALGLUCOSIDASE ALFA [Suspect]
     Active Substance: ALGLUCOSIDASE ALFA
     Indication: GLYCOGEN STORAGE DISEASE TYPE II
     Dosage: 1250 MG, QOW
     Route: 041
     Dates: start: 20210412, end: 2021
  3. VALIUM [Concomitant]
     Active Substance: DIAZEPAM
     Indication: PREMEDICATION
     Dosage: 2.5 MG
     Route: 048
  4. ADDERALL [Concomitant]
     Active Substance: AMPHETAMINE ASPARTATE\AMPHETAMINE SULFATE\DEXTROAMPHETAMINE SACCHARATE\DEXTROAMPHETAMINE SULFATE
     Indication: PREMEDICATION
     Dosage: 20 MG, QD
     Route: 048
  5. ALGLUCOSIDASE ALFA [Suspect]
     Active Substance: ALGLUCOSIDASE ALFA
     Dosage: 1250 MG, QOW
     Route: 041
     Dates: start: 2021, end: 2021

REACTIONS (7)
  - Psychogenic seizure [Unknown]
  - Cough [Unknown]
  - Tremor [Recovering/Resolving]
  - Stress [Unknown]
  - Aphasia [Recovered/Resolved]
  - Gait inability [Recovered/Resolved]
  - Muscle twitching [Recovering/Resolving]

NARRATIVE: CASE EVENT DATE: 20210726
